FAERS Safety Report 8877765 (Version 3)
Quarter: 2012Q4

REPORT INFORMATION
  Report Type: Spontaneous
  Country: IT (occurrence: None)
  Receive Date: 20121026
  Receipt Date: 20121128
  Transmission Date: 20130627
  Serious: Yes (Hospitalization)
  Sender: FDA-Public Use
  Company Number: AUR-APL-2012-04570

PATIENT
  Age: 80 Year
  Sex: Male

DRUGS (9)
  1. RAMIPRIL [Suspect]
     Indication: HYPERTENSION ARTERIAL
     Route: 048
     Dates: start: 20120101, end: 20120930
  2. AMLODIPINE (AMLODIPINE) [Suspect]
     Indication: HYPERTENSION ARTERIAL
     Route: 048
     Dates: start: 20120101, end: 20120930
  3. BISOPROLOL [Suspect]
     Indication: HYPERTENSION ARTERIAL
     Route: 048
     Dates: start: 20120101, end: 20120930
  4. ALDACTONE [Suspect]
     Indication: HYPERTENSION ARTERIAL
     Route: 048
     Dates: start: 20120101, end: 20120930
  5. VENITRIN [Suspect]
     Indication: CHRONIC ISCHEMIC HEART DISEASE, UNSPECIFIED
     Route: 062
     Dates: start: 20120101, end: 20120930
  6. FUROSEMIDE (FUROSEMIDE) [Suspect]
     Indication: HYPERTENSION ARTERIAL
     Route: 048
     Dates: start: 20120101, end: 20120930
  7. COUMADIN (WARFARIN SODIUM) [Concomitant]
  8. LANOXIN (DIGOXIN) [Concomitant]
  9. NITROGLICERINA [Suspect]
     Indication: DRUG USE FOR UNKNOWN INDICATION
     Dosage: 1 Dermatological Preparation),Transdermal

REACTIONS (3)
  - Hypotension [None]
  - Syncope [None]
  - Loss of consciousness [None]
